FAERS Safety Report 4501955-7 (Version None)
Quarter: 2004Q4

REPORT INFORMATION
  Report Type: 
  Country: None (occurrence: None)
  Receive Date: 20041115
  Receipt Date: 20041115
  Transmission Date: 20050328
  Serious: Yes (Hospitalization)
  Sender: FDA-Public Use
  Company Number: None

PATIENT
  Age: 36 Year
  Sex: Female
  Weight: 108.4 kg

DRUGS (1)
  1. KETEK [Suspect]
     Indication: URINARY TRACT INFECTION
     Dates: start: 20041103, end: 20041105

REACTIONS (4)
  - HYPOTENSION [None]
  - RASH [None]
  - RESPIRATORY FAILURE [None]
  - WHEEZING [None]
